FAERS Safety Report 7988214-5 (Version None)
Quarter: 2011Q4

REPORT INFORMATION
  Report Type: 
  Country: None (occurrence: None)
  Receive Date: 20111216
  Receipt Date: 20110606
  Transmission Date: 20120403
  Serious: No
  Sender: FDA-Public Use
  Company Number: US-BRISTOL-MYERS SQUIBB COMPANY-15810419

PATIENT
  Age: 6 Decade
  Sex: Male

DRUGS (2)
  1. ABILIFY [Suspect]
  2. EFFEXOR [Suspect]

REACTIONS (1)
  - TREMOR [None]
